FAERS Safety Report 8578473-2 (Version None)
Quarter: 2012Q3

REPORT INFORMATION
  Report Type: 
  Country: None (occurrence: None)
  Receive Date: 20120808
  Receipt Date: 20120724
  Transmission Date: 20120928
  Serious: Yes (Hospitalization, Other)
  Sender: FDA-Public Use
  Company Number: US-JNJFOC-20120413887

PATIENT
  Sex: Female
  Weight: 53.98 kg

DRUGS (45)
  1. LEVOTHYROXINE SODIUM [Concomitant]
     Indication: HYPOTHYROIDISM
     Dosage: EVERY MORNING BEFORE MEALS
     Route: 048
  2. SALINE NOSE SPRAY [Concomitant]
     Indication: PRODUCT USED FOR UNKNOWN INDICATION
     Route: 045
  3. LUTEIN [Concomitant]
     Indication: PRODUCT USED FOR UNKNOWN INDICATION
     Route: 065
  4. AN UNKNOWN MEDICATION [Concomitant]
     Indication: PRODUCT USED FOR UNKNOWN INDICATION
     Route: 065
  5. THYROID REPLACMENT [Concomitant]
     Indication: HYPOTHYROIDISM
     Route: 065
  6. ZOLOFT [Concomitant]
     Indication: DEPRESSION
     Dosage: 2 TABLETS EVERY NIGHT AT BEDTIME
     Route: 048
  7. FISH OIL [Concomitant]
     Route: 048
  8. UNSPECIFIED NEBULIZER [Concomitant]
     Route: 045
  9. HYDROCODONE BITARTRATE + ACETAMINOPHEN [Concomitant]
     Indication: PAIN
     Dosage: 5-500 MG
     Route: 048
     Dates: start: 20110624, end: 20110626
  10. TYLENOL [Concomitant]
     Indication: PRODUCT USED FOR UNKNOWN INDICATION
     Route: 048
     Dates: start: 20110624, end: 20110626
  11. MULTI-VITAMINS [Concomitant]
     Indication: PRODUCT USED FOR UNKNOWN INDICATION
     Route: 065
  12. CALCIUM CARBONATE [Concomitant]
     Indication: PRODUCT USED FOR UNKNOWN INDICATION
     Route: 065
  13. WELCHOL [Concomitant]
     Route: 048
  14. LISINOPRIL [Concomitant]
     Indication: PRODUCT USED FOR UNKNOWN INDICATION
     Route: 065
  15. LEVAQUIN [Suspect]
     Indication: LOBAR PNEUMONIA
     Dosage: PRESCRIBED FOR 10 DAYS
     Route: 048
     Dates: start: 20110624, end: 20110701
  16. XANAX [Concomitant]
     Indication: NEUROPATHY PERIPHERAL
     Route: 048
  17. CRESTOR [Concomitant]
     Indication: CARDIAC DISORDER
     Route: 048
     Dates: start: 20110624
  18. BACTROBAN [Concomitant]
     Indication: LACERATION
     Route: 061
  19. ASPIRIN [Concomitant]
     Route: 065
  20. NAPROSYN [Concomitant]
     Indication: PRODUCT USED FOR UNKNOWN INDICATION
     Route: 065
  21. ONDANSETRON [Concomitant]
     Indication: NAUSEA
     Route: 048
     Dates: start: 20110625, end: 20110626
  22. LORTAB [Concomitant]
     Dosage: AS NEEDED (HALF PILL)
     Route: 048
  23. NEXIUM [Concomitant]
     Indication: GASTRIC DISORDER
     Route: 048
     Dates: start: 20110624
  24. ALBUTEROL SULPHATE [Concomitant]
     Indication: DYSPNOEA
     Route: 055
     Dates: start: 20110624
  25. MULTIPLE VITAMIN [Concomitant]
     Route: 065
  26. OS-CAL + D [Concomitant]
     Route: 065
  27. VITAMIN B-12 [Concomitant]
     Route: 065
  28. WELCHOL [Concomitant]
     Indication: PRODUCT USED FOR UNKNOWN INDICATION
     Route: 048
  29. PLAVIX [Concomitant]
     Indication: PRODUCT USED FOR UNKNOWN INDICATION
     Route: 065
  30. DOCUSATE SODIUM [Concomitant]
     Route: 048
     Dates: start: 20110626, end: 20110626
  31. XANAX [Concomitant]
     Indication: DEPRESSION
     Route: 048
  32. LORTAB [Concomitant]
     Indication: PAIN
     Dosage: AS NEEDED (HALF PILL)
     Route: 048
  33. NITROSTAT [Concomitant]
     Indication: CARDIAC DISORDER
     Route: 048
  34. LOPRESSOR [Concomitant]
     Indication: CARDIAC DISORDER
     Route: 048
  35. LACTULOSE [Concomitant]
     Indication: CONSTIPATION
     Dosage: 10 G/15 ML
     Route: 065
  36. PREMARIN [Concomitant]
     Indication: DRY SKIN
     Route: 067
  37. XANAX [Concomitant]
     Indication: ANXIETY
     Route: 048
  38. VITAMIN D [Concomitant]
     Dosage: 400 UNITS
     Route: 065
  39. ARMODAFINIL [Concomitant]
     Indication: PRODUCT USED FOR UNKNOWN INDICATION
     Route: 065
  40. CHOLESTYRAMINE [Concomitant]
     Indication: PRODUCT USED FOR UNKNOWN INDICATION
     Route: 065
  41. IBUPROFEN [Concomitant]
  42. ONDANSETRON [Concomitant]
     Indication: VOMITING
     Route: 048
     Dates: start: 20110625, end: 20110626
  43. NITROGLYCERIN [Concomitant]
     Indication: CARDIAC DISORDER
     Route: 061
  44. REFRESH EYE DROPS [Concomitant]
     Indication: PRODUCT USED FOR UNKNOWN INDICATION
     Route: 065
  45. LOVENOX [Concomitant]
     Route: 058
     Dates: start: 20110624

REACTIONS (15)
  - BURSITIS [None]
  - FATIGUE [None]
  - CYANOSIS [None]
  - OEDEMA PERIPHERAL [None]
  - BALANCE DISORDER [None]
  - BACK PAIN [None]
  - NERVOUS SYSTEM DISORDER [None]
  - ARTHRITIS [None]
  - CARPAL TUNNEL SYNDROME [None]
  - GAIT DISTURBANCE [None]
  - TENDON RUPTURE [None]
  - TENDONITIS [None]
  - FEELING ABNORMAL [None]
  - HEART RATE IRREGULAR [None]
  - TENDON PAIN [None]
